FAERS Safety Report 21726828 (Version 2)
Quarter: 2022Q4

REPORT INFORMATION
  Report Type: Spontaneous
  Country: US (occurrence: US)
  Receive Date: 20221214
  Receipt Date: 20221221
  Transmission Date: 20230113
  Serious: Yes (Other)
  Sender: FDA-Public Use
  Company Number: US-TORRENT-00012112

PATIENT
  Age: 89 Year
  Sex: Female

DRUGS (2)
  1. PANTOPRAZOLE SODIUM [Suspect]
     Active Substance: PANTOPRAZOLE SODIUM
     Indication: Gastrointestinal haemorrhage
     Dosage: UNKNOWN
     Route: 065
     Dates: start: 2020
  2. ENALAPRIL [Concomitant]
     Active Substance: ENALAPRIL
     Indication: Blood pressure measurement
     Dosage: SINCE LAST 20-30 YEARS
     Route: 065

REACTIONS (2)
  - Neoplasm [Unknown]
  - Abdominal discomfort [Unknown]
